FAERS Safety Report 7720738-8 (Version None)
Quarter: 2011Q3

REPORT INFORMATION
  Report Type: 
  Country: None (occurrence: None)
  Receive Date: 20110825
  Receipt Date: 20110809
  Transmission Date: 20111222
  Serious: Yes (Other)
  Sender: FDA-Public Use
  Company Number: 2011P1007871

PATIENT
  Age: 44 Year
  Sex: Female
  Weight: 58.9676 kg

DRUGS (7)
  1. UNSPECIFIED THYROID MEDICATION [Concomitant]
  2. TESTOSTERONE [Concomitant]
  3. LAMOTRIGINE [Suspect]
     Indication: AFFECTIVE DISORDER
     Dosage: 150 MG;BID;PO
     Route: 048
     Dates: start: 20110501, end: 20110601
  4. LAMOTRIGINE [Suspect]
     Indication: MIGRAINE
     Dosage: 150 MG;BID;PO
     Route: 048
     Dates: start: 20110501, end: 20110601
  5. LAMOTRIGINE [Suspect]
     Indication: DEPRESSION
     Dosage: 150 MG;BID;PO
     Route: 048
     Dates: start: 20110501, end: 20110601
  6. LAMOTRIGINE [Suspect]
     Indication: BIPOLAR DISORDER
     Dosage: 150 MG;BID;PO
     Route: 048
     Dates: start: 20110501, end: 20110601
  7. UNSPECIFIED MULTIVITAMINS [Concomitant]

REACTIONS (4)
  - MANIA [None]
  - PRODUCT SUBSTITUTION ISSUE [None]
  - ANXIETY [None]
  - DEPRESSION [None]
